FAERS Safety Report 21792929 (Version 2)
Quarter: 2023Q1

REPORT INFORMATION
  Report Type: Spontaneous
  Country: US (occurrence: US)
  Receive Date: 20221229
  Receipt Date: 20230117
  Transmission Date: 20230417
  Serious: No
  Sender: FDA-Public Use
  Company Number: US-SA-SAC20221228000664

PATIENT
  Age: 76 Year
  Sex: Male

DRUGS (9)
  1. NEXVIAZYME [Suspect]
     Active Substance: AVALGLUCOSIDASE ALFA-NGPT
     Indication: Glycogen storage disease type II
     Dosage: UNK UNK, QOW
     Route: 042
     Dates: start: 20210907, end: 20221227
  2. MEPERIDINE [Concomitant]
     Active Substance: MEPERIDINE
  3. CRESTOR [Concomitant]
     Active Substance: ROSUVASTATIN CALCIUM
     Indication: Blood cholesterol
     Dosage: 40 MG, QD
     Route: 048
  4. LASIX [Concomitant]
     Active Substance: FUROSEMIDE
     Indication: Fluid retention
     Dosage: 40MG
     Route: 048
  5. LISINOPRIL [Concomitant]
     Active Substance: LISINOPRIL
     Indication: Hypertension
     Dosage: 25 MG
     Route: 048
  6. METOPROLOL [Concomitant]
     Active Substance: METOPROLOL
     Indication: Hypertension
     Dosage: 50 MG
     Route: 048
  7. LYRICA [Concomitant]
     Active Substance: PREGABALIN
     Indication: Pain
     Dosage: 50 MG BID
     Route: 048
  8. ACETAMINOPHEN [Concomitant]
     Active Substance: ACETAMINOPHEN
     Dosage: 650 MG, 1X, 30 MIN PRIOR TO INFUSION
     Route: 048
  9. LORATADINE [Concomitant]
     Active Substance: LORATADINE
     Dosage: 10 MG, 1X, 30 MIN PRIOR TO INFUSION
     Route: 048

REACTIONS (6)
  - Mental disorder [Recovered/Resolved]
  - Carbon dioxide increased [Recovered/Resolved]
  - Speech disorder [Recovered/Resolved]
  - Pallor [Recovered/Resolved]
  - Blood pressure decreased [Recovered/Resolved]
  - Chills [Recovered/Resolved]

NARRATIVE: CASE EVENT DATE: 20221227
